FAERS Safety Report 8290334-5 (Version None)
Quarter: 2012Q2

REPORT INFORMATION
  Report Type: 
  Country: None (occurrence: None)
  Receive Date: 20120413
  Receipt Date: 20120413
  Transmission Date: 20120825
  Serious: Yes (Other)
  Sender: FDA-Public Use
  Company Number: None

PATIENT
  Age: 76 Year
  Sex: Female
  Weight: 74.8435 kg

DRUGS (1)
  1. DIFLUCAN [Suspect]
     Dosage: 2 PILLS 1 NOW 2ND ONE IN 3 DAYS BEFORE MANY DIFFERENT TIMES
     Dates: start: 20100101

REACTIONS (4)
  - DISCOMFORT [None]
  - SWELLING [None]
  - ERYTHEMA [None]
  - PARAESTHESIA [None]
